FAERS Safety Report 13306088 (Version 1)
Quarter: 2017Q1

REPORT INFORMATION
  Report Type: Spontaneous
  Country: FI (occurrence: FI)
  Receive Date: 20170308
  Receipt Date: 20170308
  Transmission Date: 20170428
  Serious: Yes (Hospitalization)
  Sender: FDA-Public Use
  Company Number: FI-AUROBINDO-AUR-APL-2017-30835

PATIENT
  Sex: Female

DRUGS (4)
  1. ORFIRIL [Concomitant]
     Active Substance: VALPROIC ACID
     Indication: PRODUCT USED FOR UNKNOWN INDICATION
     Dosage: 1500 PER DAY
     Route: 048
     Dates: start: 201608, end: 20161226
  2. LAMICTAL [Concomitant]
     Active Substance: LAMOTRIGINE
     Indication: PRODUCT USED FOR UNKNOWN INDICATION
     Dosage: 12.5-25 PER DAY
     Route: 048
     Dates: start: 20161223, end: 20170105
  3. OLANZAPINE ORION ORODISPERSIBLE TABLET [Suspect]
     Active Substance: OLANZAPINE
     Indication: SCHIZOPHRENIA
     Dosage: 5 + 20 PER DAY
     Route: 048
     Dates: start: 201608, end: 20170101
  4. LEPONEX [Concomitant]
     Active Substance: CLOZAPINE
     Indication: SCHIZOPHRENIA
     Dosage: 700 MG, DAILY
     Route: 048
     Dates: end: 20170105

REACTIONS (2)
  - Neutropenia [Not Recovered/Not Resolved]
  - Decreased appetite [Not Recovered/Not Resolved]
